FAERS Safety Report 7707833-4 (Version None)
Quarter: 2011Q3

REPORT INFORMATION
  Report Type: 
  Country: None (occurrence: None)
  Receive Date: 20110824
  Receipt Date: 20110811
  Transmission Date: 20111222
  Serious: Yes (Hospitalization, Other)
  Sender: FDA-Public Use
  Company Number: TW-GENENTECH-321930

PATIENT
  Sex: Male

DRUGS (9)
  1. LUCENTIS [Suspect]
     Dosage: 2.3 MG, UNK
     Route: 031
     Dates: start: 20110509
  2. DIOVAN [Concomitant]
     Indication: HYPERTENSION
     Dosage: UNK
     Dates: start: 20110428
  3. JANUVIA [Concomitant]
     Indication: DIABETES MELLITUS
     Dosage: UNK
     Dates: start: 20100429
  4. WARFARIN SODIUM [Concomitant]
     Route: 040
  5. LUCENTIS [Suspect]
     Indication: CYSTOID MACULAR OEDEMA
     Dosage: UNK UNK, UNKNOWN
     Route: 031
     Dates: start: 20110117
  6. WARFARIN SODIUM [Concomitant]
     Indication: CEREBRAL ARTERY OCCLUSION
     Dosage: UNK
     Route: 048
     Dates: start: 20100401
  7. LUCENTIS [Suspect]
     Dosage: UNK
     Route: 031
     Dates: start: 20110314
  8. KENTAMIN [Concomitant]
     Indication: NUTRITIONAL SUPPORT
     Dosage: UNK
     Dates: start: 20100925
  9. RASILEZ [Concomitant]
     Indication: HYPERTENSION

REACTIONS (9)
  - EYE MOVEMENT DISORDER [None]
  - GLYCOSYLATED HAEMOGLOBIN INCREASED [None]
  - PROTHROMBIN TIME PROLONGED [None]
  - APHASIA [None]
  - INTRACRANIAL PRESSURE INCREASED [None]
  - MUSCULAR WEAKNESS [None]
  - DYSARTHRIA [None]
  - GAIT DISTURBANCE [None]
  - CEREBROVASCULAR ACCIDENT [None]
